FAERS Safety Report 20111014 (Version 1)
Quarter: 2021Q4

REPORT INFORMATION
  Report Type: Spontaneous
  Country: FR (occurrence: FR)
  Receive Date: 20211125
  Receipt Date: 20211125
  Transmission Date: 20220304
  Serious: Yes (Other)
  Sender: FDA-Public Use
  Company Number: FR-ABBVIE-21K-056-4173983-00

PATIENT
  Sex: Female

DRUGS (2)
  1. VALPROATE SODIUM [Suspect]
     Active Substance: VALPROATE SODIUM
     Indication: Epilepsy
     Route: 048
     Dates: start: 198611, end: 19870301
  2. ORTENAL [Suspect]
     Active Substance: AMPHETAMINE SULFATE\PHENOBARBITAL
     Indication: Epilepsy
     Route: 048
     Dates: start: 198611, end: 19870301

REACTIONS (2)
  - Premature rupture of membranes [Unknown]
  - Maternal exposure during pregnancy [Unknown]

NARRATIVE: CASE EVENT DATE: 19861101
